FAERS Safety Report 8152013-4 (Version None)
Quarter: 2012Q1

REPORT INFORMATION
  Report Type: 
  Country: None (occurrence: None)
  Receive Date: 20120221
  Receipt Date: 20120216
  Transmission Date: 20120608
  Serious: No
  Sender: FDA-Public Use
  Company Number: US-PFIZER INC-2011079644

PATIENT
  Sex: Female
  Weight: 54.422 kg

DRUGS (2)
  1. SPIRIVA [Concomitant]
     Indication: BRONCHITIS
     Dosage: AS NEEDED
  2. AVINZA [Suspect]
     Dosage: 60 MG, 1X/DAY
     Route: 048
     Dates: start: 20090101

REACTIONS (13)
  - FEELING ABNORMAL [None]
  - NAUSEA [None]
  - RHINORRHOEA [None]
  - ARTHROPOD BITE [None]
  - HEADACHE [None]
  - FEELING COLD [None]
  - LYMPHADENOPATHY [None]
  - ABDOMINAL PAIN UPPER [None]
  - GAIT DISTURBANCE [None]
  - MALAISE [None]
  - PAIN IN EXTREMITY [None]
  - DRUG DIVERSION [None]
  - ASTHENIA [None]
